FAERS Safety Report 4155803 (Version 3)
Quarter: 2017Q1

REPORT INFORMATION
  Report Type: Spontaneous
  Country: JP (occurrence: JP)
  Receive Date: 20040617
  Receipt Date: 20170207
  Transmission Date: 20170429
  Serious: Yes (Life-Threatening, Other)
  Sender: FDA-Public Use
  Company Number: JP-BRISTOL-MYERS SQUIBB COMPANY-12608899

PATIENT
  Sex: Male

DRUGS (1)
  1. FUNGIZONE [Suspect]
     Active Substance: AMPHOTERICIN B
     Indication: PULMONARY MYCOSIS
     Dosage: INITIATED AT 10 MG ON 12/9/2003, 20 MG FROM 12/10/2003 TO 12/18/2003, 5 MG ON 1/9/2004
     Route: 042
     Dates: start: 20031209, end: 20040109

REACTIONS (1)
  - Acute myocardial infarction [Recovering/Resolving]

NARRATIVE: CASE EVENT DATE: 20040109
